FAERS Safety Report 4781208-2 (Version None)
Quarter: 2005Q3

REPORT INFORMATION
  Report Type: 
  Country: None (occurrence: None)
  Receive Date: 20050914
  Receipt Date: 20050105
  Transmission Date: 20060218
  Serious: Yes (Hospitalization)
  Sender: FDA-Public Use
  Company Number: 163-20785-05010070

PATIENT
  Age: 59 Year
  Sex: Female
  Weight: 84 kg

DRUGS (17)
  1. THALOMID [Suspect]
     Indication: MULTIPLE MYELOMA
     Dosage: 100 MG, DAILY, ORAL
     Route: 048
     Dates: end: 20050103
  2. VINCRISTINE [Suspect]
     Indication: MULTIPLE MYELOMA
     Dates: start: 20041221, end: 20041224
  3. ADRIAMYCIN PFS [Suspect]
     Indication: MULTIPLE MYELOMA
     Dates: start: 20041221, end: 20041224
  4. DEXAMETHASONE [Suspect]
     Indication: MULTIPLE MYELOMA
     Dates: start: 20041221
  5. MULTIVITAMIN (MULTIVITAMINS) (TABLETS) [Concomitant]
  6. PRILOSEC (OMEPRAZOLE) (UNKNOWN) [Concomitant]
  7. TIAZAC (DILTIAZEM HYDROCHLORIDE) (UNKNOWN) [Concomitant]
  8. DIOVAN [Concomitant]
  9. LASIX [Concomitant]
  10. NEURONTIN [Concomitant]
  11. ALLEGRA (FEXOFENADINE HYDROCHLORIDE) (UNKNOWN) [Concomitant]
  12. ALBUTEROL (SALBUTAMOL) (UNKNOWN) [Concomitant]
  13. ADVAIR (SERETIDE MITE) (UNKNOWN) [Concomitant]
  14. COMBIVENT (COMBIVENT) (UNKNOWN) [Concomitant]
  15. DURAGESIC (FENTANYL) (POULTICE OR PATCH) [Concomitant]
  16. BEXTRA (VALDECOXIB) (UNKNOWN) [Concomitant]
  17. WARFARIN SODIUM [Concomitant]

REACTIONS (2)
  - ANAEMIA [None]
  - PNEUMONIA [None]
